FAERS Safety Report 17398603 (Version 2)
Quarter: 2020Q3

REPORT INFORMATION
  Report Type: Report from Study
  Country: DE (occurrence: DE)
  Receive Date: 20200210
  Receipt Date: 20200822
  Transmission Date: 20201102
  Serious: Yes (Other)
  Sender: FDA-Public Use
  Company Number: PHHY2019DE029637

PATIENT
  Sex: Female

DRUGS (2)
  1. METHOTREXATE. [Suspect]
     Active Substance: METHOTREXATE
     Indication: PRODUCT USED FOR UNKNOWN INDICATION
     Route: 065
  2. ERELZI [Suspect]
     Active Substance: ETANERCEPT-SZZS
     Indication: RHEUMATOID ARTHRITIS
     Route: 065

REACTIONS (5)
  - Campylobacter gastroenteritis [Recovered/Resolved]
  - Gastroenteritis [Recovered/Resolved]
  - Tachycardia [Recovered/Resolved]
  - Sciatica [Not Recovered/Not Resolved]
  - Oesophagitis [Recovered/Resolved]

NARRATIVE: CASE EVENT DATE: 20180615
